FAERS Safety Report 6194368-6 (Version None)
Quarter: 2009Q2

REPORT INFORMATION
  Report Type: 
  Country: None (occurrence: None)
  Receive Date: 20090519
  Receipt Date: 20090511
  Transmission Date: 20091009
  Serious: Yes (Death)
  Sender: FDA-Public Use
  Company Number: US-SP-2009-02102

PATIENT
  Age: 38 Year
  Sex: Male

DRUGS (4)
  1. IMOVAX RABIES I.D. [Suspect]
     Indication: IMMUNISATION
     Route: 030
     Dates: start: 20090504
  2. IMOVAX RABIES I.D. [Suspect]
     Route: 030
     Dates: start: 20090504
  3. IMOGAM RABIES-HT [Suspect]
     Indication: IMMUNISATION
     Route: 065
     Dates: start: 20090504
  4. IMOGAM RABIES-HT [Suspect]
     Route: 065
     Dates: start: 20090504

REACTIONS (2)
  - DEATH [None]
  - VOMITING [None]
